FAERS Safety Report 13738252 (Version 1)
Quarter: 2017Q3

REPORT INFORMATION
  Report Type: Spontaneous
  Country: BR (occurrence: BR)
  Receive Date: 20170710
  Receipt Date: 20170710
  Transmission Date: 20171127
  Serious: Yes (Other)
  Sender: FDA-Public Use
  Company Number: PHHY2011BR11149

PATIENT
  Age: 82 Year
  Sex: Female

DRUGS (7)
  1. CALMAPAX [Concomitant]
     Indication: NERVOUSNESS
     Dosage: 1 TABLET
     Dates: start: 2001
  2. DILACOR [Concomitant]
     Indication: HYPERTENSION
     Dosage: 80 MG, UNK
     Dates: start: 200401
  3. DILACORON [Concomitant]
     Active Substance: VERAPAMIL HYDROCHLORIDE
     Dosage: 80 MG, UNK
  4. SIMVASTATIN. [Concomitant]
     Active Substance: SIMVASTATIN
     Indication: BLOOD CHOLESTEROL
     Dosage: 20 MG, DAILY
     Dates: start: 2004
  5. HYDERGINE [Suspect]
     Active Substance: ERGOLOID MESYLATES
     Indication: MEMORY IMPAIRMENT
  6. AAS [Concomitant]
     Active Substance: ASPIRIN
     Indication: ANTICOAGULANT THERAPY
     Dosage: 100 MG, DAILY
     Dates: start: 200401, end: 201012
  7. GLIMEPIRIDE. [Concomitant]
     Active Substance: GLIMEPIRIDE
     Indication: DIABETES MELLITUS
     Dosage: 1 MG, UNK

REACTIONS (1)
  - Diabetes mellitus [Unknown]

NARRATIVE: CASE EVENT DATE: 2003
